FAERS Safety Report 4370484-6 (Version None)
Quarter: 2004Q2

REPORT INFORMATION
  Report Type: 
  Country: None (occurrence: None)
  Receive Date: 20040527
  Receipt Date: 20040513
  Transmission Date: 20050107
  Serious: Yes (Congenital Anomaly)
  Sender: FDA-Public Use
  Company Number: 2004-DE-02827GD

PATIENT
  Sex: Male

DRUGS (4)
  1. AZATHIOPRINE [Suspect]
     Dosage: SEE IMAGE
  2. HYDROCORTISONE [Suspect]
     Dosage: SEE IMAGE
  3. ANTIBIOTICS (ANTIBIOTICS) [Suspect]
     Dosage: SEE IMAGE
  4. ANALGESICS (ANALGESICS) [Suspect]
     Dosage: SEE IMAGE

REACTIONS (5)
  - CONGENITAL HYDRONEPHROSIS [None]
  - CONGENITAL MEGAURETER [None]
  - DRUG EXPOSURE DURING PREGNANCY [None]
  - PREGNANCY OF PARTNER [None]
  - TRANSMISSION OF DRUG VIA SEMEN [None]
